FAERS Safety Report 6786522-7 (Version None)
Quarter: 2010Q2

REPORT INFORMATION
  Report Type: 
  Country: None (occurrence: None)
  Receive Date: 20100623
  Receipt Date: 20100619
  Transmission Date: 20101027
  Serious: Yes (Other)
  Sender: FDA-Public Use
  Company Number: A0866240A

PATIENT
  Age: 35 Year
  Sex: Female

DRUGS (4)
  1. ALLI [Suspect]
     Indication: DRUG USE FOR UNKNOWN INDICATION
     Route: 048
  2. ANTIDEPRESSANT [Concomitant]
     Indication: DEPRESSION
  3. UNKNOWN DRUG FOR ANXIETY [Concomitant]
     Indication: ANXIETY
  4. DIABETES MEDICATION [Concomitant]

REACTIONS (2)
  - ASTHMA [None]
  - DYSPNOEA [None]
